FAERS Safety Report 5005188-X (Version None)
Quarter: 2006Q2

REPORT INFORMATION
  Report Type: 
  Country: None (occurrence: None)
  Receive Date: 20060518
  Receipt Date: 20060511
  Transmission Date: 20061013
  Serious: Yes (Other)
  Sender: FDA-Public Use
  Company Number: SE-JNJFOC-20060502894

PATIENT
  Sex: Male

DRUGS (6)
  1. REMICADE [Suspect]
     Indication: DRUG USE FOR UNKNOWN INDICATION
     Route: 042
  2. LANSOPRAZOLE [Concomitant]
     Route: 048
  3. INDOMEE [Concomitant]
     Route: 054
  4. PREDNISOLONE [Concomitant]
     Route: 048
  5. FLUNITRAZEPAM [Concomitant]
     Route: 048
  6. RISEDRONATE SODIUM [Concomitant]
     Route: 048

REACTIONS (1)
  - LYMPHOMA [None]
